FAERS Safety Report 16817315 (Version 4)
Quarter: 2019Q4

REPORT INFORMATION
  Report Type: Spontaneous
  Country: US (occurrence: US)
  Receive Date: 20190917
  Receipt Date: 20191114
  Transmission Date: 20200122
  Serious: No
  Sender: FDA-Public Use
  Company Number: US-PFIZER INC-2019320709

PATIENT
  Age: 68 Year
  Sex: Male
  Weight: 77.98 kg

DRUGS (2)
  1. CHANTIX [Suspect]
     Active Substance: VARENICLINE TARTRATE
     Dosage: 1 MG, 1X/DAY,(1 MG/ ONCE DAILY)
     Route: 048
     Dates: start: 20190601
  2. CHANTIX [Suspect]
     Active Substance: VARENICLINE TARTRATE
     Indication: SMOKING CESSATION THERAPY
     Dosage: 1 MG, 2X/DAY
     Route: 048
     Dates: start: 201905

REACTIONS (5)
  - Nausea [Recovered/Resolved]
  - Abnormal dreams [Not Recovered/Not Resolved]
  - Product dispensing error [Unknown]
  - Intentional product use issue [Unknown]
  - Dysgeusia [Not Recovered/Not Resolved]

NARRATIVE: CASE EVENT DATE: 2019
